FAERS Safety Report 13209189 (Version 5)
Quarter: 2019Q1

REPORT INFORMATION
  Report Type: Spontaneous
  Country: US (occurrence: US)
  Receive Date: 20170209
  Receipt Date: 20190102
  Transmission Date: 20190417
  Serious: Yes (Other)
  Sender: FDA-Public Use
  Company Number: US-ABBVIE-17P-163-1862879-00

PATIENT
  Sex: Female

DRUGS (1)
  1. LUPRON [Suspect]
     Active Substance: LEUPROLIDE ACETATE
     Indication: UTERINE LEIOMYOMA
     Route: 065

REACTIONS (5)
  - Uterine disorder [Unknown]
  - Adverse drug reaction [Unknown]
  - Uterine leiomyoma [Unknown]
  - Endometriosis [Unknown]
  - Drug ineffective [Unknown]
